FAERS Safety Report 4842549-3 (Version None)
Quarter: 2005Q4

REPORT INFORMATION
  Report Type: 
  Country: None (occurrence: None)
  Receive Date: 20051201
  Receipt Date: 20051123
  Transmission Date: 20060501
  Serious: Yes (Other)
  Sender: FDA-Public Use
  Company Number: AU-JNJFOC-20051105145

PATIENT
  Sex: Female

DRUGS (1)
  1. TOPAMAX [Suspect]
     Indication: EPILEPSY
     Route: 048

REACTIONS (6)
  - CONDITION AGGRAVATED [None]
  - CONVULSION [None]
  - COUGH [None]
  - INFLUENZA [None]
  - NIGHT BLINDNESS [None]
  - THERAPEUTIC RESPONSE DECREASED [None]
